FAERS Safety Report 10598247 (Version 1)
Quarter: 2014Q4

REPORT INFORMATION
  Report Type: Spontaneous
  Country: US (occurrence: US)
  Receive Date: 20141121
  Receipt Date: 20141121
  Transmission Date: 20150529
  Serious: Yes (Other)
  Sender: FDA-Public Use
  Company Number: US-PFIZER INC-2014317436

PATIENT
  Age: 58 Year
  Sex: Female
  Weight: 82.54 kg

DRUGS (10)
  1. KEFLEX [Concomitant]
     Active Substance: CEPHALEXIN
     Indication: BRONCHITIS
     Dosage: 500 MG, 3X/DAY
     Route: 048
  2. NORVASC [Concomitant]
     Active Substance: AMLODIPINE BESYLATE
     Indication: BLOOD PRESSURE ABNORMAL
     Dosage: 5 MG, 1X/DAY
     Route: 048
  3. XARELTO [Concomitant]
     Active Substance: RIVAROXABAN
     Indication: BLOOD DISORDER
     Dosage: 20 MG (IN THE EVENING)
     Route: 048
  4. REVATIO [Suspect]
     Active Substance: SILDENAFIL CITRATE
     Indication: PULMONARY HYPERTENSION
     Dosage: 20 MG, 3X/DAY
     Route: 048
     Dates: start: 2012
  5. LASIX [Concomitant]
     Active Substance: FUROSEMIDE
     Indication: VENA CAVA FILTER INSERTION
     Dosage: 40 MG, (1-2 TIMES A DAY)
     Route: 048
  6. POTASSIUM CHLORIDE. [Concomitant]
     Active Substance: POTASSIUM CHLORIDE
     Indication: FLUID RETENTION
     Dosage: 8 MEQ, (ONCE OR TWICE A DAY)
     Route: 048
  7. XOPENEX [Concomitant]
     Active Substance: LEVALBUTEROL HYDROCHLORIDE
     Indication: LUNG DISORDER
     Dosage: 45 ?G, EVERY 6 HOURS
     Route: 055
  8. GLIPERIDE [Concomitant]
     Indication: BLOOD GLUCOSE ABNORMAL
     Dosage: 5 MG, 1X/DAY
     Route: 048
  9. ATIVAN [Concomitant]
     Active Substance: LORAZEPAM
     Indication: ANXIETY
     Dosage: 1 MG, EVERY 6 HOURS
     Route: 048
  10. OXYGEN. [Concomitant]
     Active Substance: OXYGEN
     Dosage: 2L LAYING DOWN, AND 4L ACTIVITIES
     Route: 045

REACTIONS (7)
  - Hypertension [Not Recovered/Not Resolved]
  - Bronchitis [Not Recovered/Not Resolved]
  - Expired product administered [Unknown]
  - Lung cyst [Unknown]
  - Intervertebral disc protrusion [Not Recovered/Not Resolved]
  - Blood cholesterol abnormal [Unknown]
  - Spinal pain [Not Recovered/Not Resolved]

NARRATIVE: CASE EVENT DATE: 2014
